FAERS Safety Report 16012913 (Version 2)
Quarter: 2019Q1

REPORT INFORMATION
  Report Type: Report from Study
  Country: US (occurrence: US)
  Receive Date: 20190227
  Receipt Date: 20190315
  Transmission Date: 20190418
  Serious: No
  Sender: FDA-Public Use
  Company Number: US-ROCHE-2159435

PATIENT
  Age: 67 Year
  Sex: Female
  Weight: 66.28 kg

DRUGS (2)
  1. OCREVUS [Suspect]
     Active Substance: OCRELIZUMAB
     Dosage: SECOND HALF DOSE?ONCE EVERY 6 MONTHS.
     Route: 042
     Dates: start: 20180201
  2. OCREVUS [Suspect]
     Active Substance: OCRELIZUMAB
     Indication: RELAPSING-REMITTING MULTIPLE SCLEROSIS
     Dosage: ONCE EVERY 6 WEEKS, ONGOING: NO
     Route: 042
     Dates: start: 201801, end: 201802

REACTIONS (5)
  - Cognitive disorder [Not Recovered/Not Resolved]
  - Somnolence [Recovered/Resolved]
  - Influenza [Recovering/Resolving]
  - Throat irritation [Recovered/Resolved]
  - Ear pruritus [Recovered/Resolved]

NARRATIVE: CASE EVENT DATE: 20190201
